FAERS Safety Report 5043158-6 (Version None)
Quarter: 2006Q2

REPORT INFORMATION
  Report Type: 
  Country: None (occurrence: None)
  Receive Date: 20060628
  Receipt Date: 20060620
  Transmission Date: 20061013
  Serious: Yes (Death)
  Sender: FDA-Public Use
  Company Number: E2020-00172-SPO-FR

PATIENT
  Age: 82 Year
  Sex: Female
  Weight: 63 kg

DRUGS (14)
  1. ARICEPT [Suspect]
     Indication: DEMENTIA ALZHEIMER'S TYPE
     Dosage: ORAL
     Route: 048
     Dates: start: 20060222, end: 20060223
  2. LOVENOX [Concomitant]
  3. ZOLPIDEM TARTRATE [Concomitant]
  4. MORPHINE [Concomitant]
  5. PLAVIX [Concomitant]
  6. PRAVASTATIN [Concomitant]
  7. OMEPRAZOLE [Concomitant]
  8. RAMIPRIL [Concomitant]
  9. CORVASAL (MOLSIDOMINE) [Concomitant]
  10. ASPEGIC 1000 [Concomitant]
  11. CLONAZEPAM [Concomitant]
  12. KOREL (NICORANDIL0 [Concomitant]
  13. FUROSEMIDE [Concomitant]
  14. VASTAREL (TRIMETAZIDINE) [Concomitant]

REACTIONS (2)
  - PULMONARY EMBOLISM [None]
  - RESPIRATORY FAILURE [None]
